FAERS Safety Report 5782618-7 (Version None)
Quarter: 2008Q2

REPORT INFORMATION
  Report Type: 
  Country: None (occurrence: None)
  Receive Date: 20080624
  Receipt Date: 20080618
  Transmission Date: 20081010
  Serious: Yes (Death)
  Sender: FDA-Public Use
  Company Number: SI-ABBOTT-08P-261-0458219-00

PATIENT
  Sex: Female

DRUGS (1)
  1. KALETRA [Suspect]
     Indication: HIV INFECTION
     Dosage: 800/200 MG (400/100 MG TWICE DAILY FROM STRENGTH 200/50 MG)
     Route: 048
     Dates: start: 20080520, end: 20080602

REACTIONS (3)
  - ACQUIRED IMMUNODEFICIENCY SYNDROME [None]
  - DRUG INEFFECTIVE [None]
  - MENINGITIS CRYPTOCOCCAL [None]
